FAERS Safety Report 12986772 (Version 3)
Quarter: 2016Q4

REPORT INFORMATION
  Report Type: Report from Study
  Country: JP (occurrence: JP)
  Receive Date: 20161130
  Receipt Date: 20161226
  Transmission Date: 20170207
  Serious: Yes (Death, Other)
  Sender: FDA-Public Use
  Company Number: JP-UCBSA-2016045201

PATIENT
  Age: 57 Year
  Sex: Female
  Weight: 39.5 kg

DRUGS (5)
  1. ESCRE [Concomitant]
     Dosage: 500 MG, ONCE DAILY (QD)
     Route: 054
     Dates: start: 20160618, end: 20160620
  2. CEFAMEZIN ALPHA [Concomitant]
     Active Substance: CEFAZOLIN SODIUM
     Indication: INFECTION PROPHYLAXIS
     Dosage: 2 G, ONCE DAILY (QD)
     Route: 042
     Dates: start: 20160612, end: 20160706
  3. LEVETIRACETAM. [Suspect]
     Active Substance: LEVETIRACETAM
     Indication: GENERALISED TONIC-CLONIC SEIZURE
     Dosage: 500 MG, 2X/DAY (BID)
     Route: 041
     Dates: start: 20160611, end: 20160707
  4. CERCINE [Concomitant]
     Active Substance: DIAZEPAM
     Indication: GENERALISED TONIC-CLONIC SEIZURE
     Dosage: 5 MG, ONCE DAILY (QD)
     Route: 042
     Dates: start: 20160612, end: 20160612
  5. ESCRE [Concomitant]
     Indication: GENERALISED TONIC-CLONIC SEIZURE
     Dosage: 500 MG, ONCE DAILY (QD)
     Route: 054
     Dates: start: 20160613, end: 20160614

REACTIONS (1)
  - Creutzfeldt-Jakob disease [Fatal]

NARRATIVE: CASE EVENT DATE: 20160708
